FAERS Safety Report 15295334 (Version 1)
Quarter: 2018Q3

REPORT INFORMATION
  Report Type: Spontaneous
  Country: UM (occurrence: UM)
  Receive Date: 20180807
  Receipt Date: 20180807
  Transmission Date: 20181010
  Serious: Yes (Disabling)
  Sender: FDA-Public Use
  Company Number: None

PATIENT
  Age: 68 Year
  Sex: Female
  Weight: 81 kg

DRUGS (5)
  1. METOPROLOL. [Concomitant]
     Active Substance: METOPROLOL
  2. MAGNESIUM [Concomitant]
     Active Substance: MAGNESIUM
  3. MULTAQ [Suspect]
     Active Substance: DRONEDARONE
     Indication: ATRIAL FIBRILLATION
     Dosage: ?          QUANTITY:1 TABLET(S);?
     Route: 048
     Dates: start: 20180501, end: 20180801
  4. XARELTO [Concomitant]
     Active Substance: RIVAROXABAN
  5. ANORARO [Concomitant]

REACTIONS (4)
  - Insomnia [None]
  - Crying [None]
  - Pain in extremity [None]
  - Thrombosis [None]
